FAERS Safety Report 10505066 (Version 2)
Quarter: 2015Q1

REPORT INFORMATION
  Report Type: Spontaneous
  Country: FR (occurrence: FR)
  Receive Date: 20141008
  Receipt Date: 20141008
  Transmission Date: 20150720
  Serious: Yes (Death, Hospitalization)
  Sender: FDA-Public Use
  Company Number: FR-SA-2014SA135232

PATIENT
  Age: 92 Year
  Sex: Female

DRUGS (15)
  1. PRINCI-B [Concomitant]
  2. RISPERIDONE. [Concomitant]
     Active Substance: RISPERIDONE
     Dosage: 0.5 MG
     Dates: start: 20140701
  3. LEVOTHYROX [Concomitant]
     Active Substance: LEVOTHYROXINE
     Dosage: 50 MICROGRAM
  4. PLAVIX [Concomitant]
     Active Substance: CLOPIDOGREL BISULFATE
     Dosage: 75 MG
     Dates: end: 20140717
  5. TRIATEC [Concomitant]
     Active Substance: RAMIPRIL
     Dosage: 5 MG
  6. MIANSERINE [Concomitant]
     Active Substance: MIANSERIN HYDROCHLORIDE
     Dosage: 10 MG
  7. VALIUM [Concomitant]
     Active Substance: DIAZEPAM
     Dosage: DRINKABLE SOLUTION?10 MG
  8. LOVENOX [Suspect]
     Active Substance: ENOXAPARIN SODIUM
     Route: 065
     Dates: start: 20140707, end: 20140714
  9. CALCIPARINE [Suspect]
     Active Substance: HEPARIN CALCIUM
     Route: 058
     Dates: end: 20140716
  10. DAFALGAN [Concomitant]
     Active Substance: ACETAMINOPHEN
     Dosage: 500 MG
  11. BISOCE [Concomitant]
     Active Substance: BISOPROLOL
     Dosage: 2.5 MG
  12. HEPARIN SODIUM PANPHARMA [Suspect]
     Active Substance: HEPARIN SODIUM
     Route: 042
     Dates: start: 20140715, end: 20140715
  13. DIGOXIN. [Concomitant]
     Active Substance: DIGOXIN
  14. INNOHEP [Suspect]
     Active Substance: TINZAPARIN SODIUM
     Route: 065
     Dates: start: 20140716, end: 20140717
  15. NICOBION [Concomitant]
     Active Substance: NIACINAMIDE
     Dosage: 500 MG

REACTIONS (3)
  - Haematoma [Fatal]
  - Anaemia [Fatal]
  - Cardiac failure [Fatal]

NARRATIVE: CASE EVENT DATE: 20140716
